FAERS Safety Report 5721220-X (Version None)
Quarter: 2008Q2

REPORT INFORMATION
  Report Type: 
  Country: None (occurrence: None)
  Receive Date: 20080424
  Receipt Date: 20080410
  Transmission Date: 20081010
  Serious: Yes (Death)
  Sender: FDA-Public Use
  Company Number: S08-FRA-01474-01

PATIENT
  Age: 79 Year
  Sex: Male

DRUGS (4)
  1. MEMANTINE HCL [Suspect]
     Indication: DEMENTIA
     Dosage: 20 MG QD PO
     Route: 048
     Dates: start: 20070501
  2. MEMANTINE HCL [Suspect]
     Indication: VASCULAR DEMENTIA
     Dosage: 20 MG QD PO
     Route: 048
     Dates: start: 20070501
  3. ZOLOFT [Suspect]
     Indication: MENTAL DISORDER
     Dosage: 25 MG QD
     Dates: start: 20070401
  4. ENATONE (LEUPRORELIN) [Concomitant]

REACTIONS (3)
  - DISSOCIATIVE FUGUE [None]
  - DRUG INTERACTION [None]
  - THROMBOCYTOPENIA [None]
